FAERS Safety Report 20731158 (Version 2)
Quarter: 2022Q2

REPORT INFORMATION
  Report Type: Spontaneous
  Country: JP (occurrence: JP)
  Receive Date: 20220420
  Receipt Date: 20220426
  Transmission Date: 20220721
  Serious: Yes (Disabling, Other)
  Sender: FDA-Public Use
  Company Number: JP-DSJP-DSJ-2022-113579

PATIENT
  Age: 72 Year
  Sex: Male

DRUGS (2)
  1. PRASUGREL HYDROCHLORIDE [Suspect]
     Active Substance: PRASUGREL HYDROCHLORIDE
     Indication: Product used for unknown indication
     Dosage: OD TABLET 20 MG, QD
     Route: 065
     Dates: start: 202003, end: 202003
  2. PRASUGREL HYDROCHLORIDE [Suspect]
     Active Substance: PRASUGREL HYDROCHLORIDE
     Dosage: 3.75 MG, QD
     Route: 065
     Dates: start: 202003, end: 202003

REACTIONS (2)
  - Cerebral haemorrhage [Unknown]
  - Physical disability [Unknown]
